FAERS Safety Report 13338659 (Version 1)
Quarter: 2017Q1

REPORT INFORMATION
  Report Type: Spontaneous
  Country: US (occurrence: US)
  Receive Date: 20170315
  Receipt Date: 20170315
  Transmission Date: 20170428
  Serious: No
  Sender: FDA-Public Use
  Company Number: US-DEPOMED, INC.-US-2017DEP000254

PATIENT

DRUGS (2)
  1. GRALISE [Suspect]
     Active Substance: GABAPENTIN
     Indication: NEUROPATHY PERIPHERAL
     Dosage: 1800 MG, QD
     Route: 048
     Dates: start: 20161228, end: 20170125
  2. GRALISE [Suspect]
     Active Substance: GABAPENTIN
     Indication: MYALGIA

REACTIONS (3)
  - Drug ineffective for unapproved indication [Unknown]
  - Product use issue [Recovered/Resolved]
  - Irritability [Unknown]

NARRATIVE: CASE EVENT DATE: 20161228
